FAERS Safety Report 14568374 (Version 1)
Quarter: 2018Q1

REPORT INFORMATION
  Report Type: Spontaneous
  Country: US (occurrence: US)
  Receive Date: 20180223
  Receipt Date: 20180223
  Transmission Date: 20180509
  Serious: Yes (Hospitalization)
  Sender: FDA-Public Use
  Company Number: US-RISING PHARMACEUTICALS, INC.-2018RIS00079

PATIENT
  Age: 71 Year
  Sex: Female

DRUGS (1)
  1. PROCTOZONE-HC [Suspect]
     Active Substance: HYDROCORTISONE
     Indication: RECTAL PROLAPSE
     Dosage: UNK, 4X/DAY
     Route: 054

REACTIONS (3)
  - Skin exfoliation [Not Recovered/Not Resolved]
  - Respiratory tract infection fungal [Recovering/Resolving]
  - Clostridium difficile infection [Recovered/Resolved]

NARRATIVE: CASE EVENT DATE: 201601
